FAERS Safety Report 18884471 (Version 1)
Quarter: 2021Q1

REPORT INFORMATION
  Report Type: Report from Study
  Country: US (occurrence: US)
  Receive Date: 20210211
  Receipt Date: 20210211
  Transmission Date: 20210420
  Serious: Yes (Other)
  Sender: FDA-Public Use
  Company Number: US-JNJFOC-20210213986

PATIENT

DRUGS (1)
  1. ELMIRON [Suspect]
     Active Substance: PENTOSAN POLYSULFATE SODIUM
     Indication: CYSTITIS INTERSTITIAL
     Route: 065

REACTIONS (6)
  - Retinal drusen [Unknown]
  - Macular degeneration [Unknown]
  - Macular pigmentation [Unknown]
  - Macular fibrosis [Unknown]
  - Macular hole [Unknown]
  - Subretinal fluid [Unknown]
